FAERS Safety Report 7415480-7 (Version None)
Quarter: 2011Q2

REPORT INFORMATION
  Report Type: 
  Country: None (occurrence: None)
  Receive Date: 20110414
  Receipt Date: 20110401
  Transmission Date: 20111010
  Serious: Yes (Disabling)
  Sender: FDA-Public Use
  Company Number: TN-JNJFOC-20101003635

PATIENT
  Age: 48 Year
  Sex: Male

DRUGS (1)
  1. KETOCONAZOLE [Suspect]
     Indication: MYCETOMA MYCOTIC
     Dosage: INITIAL THERAPY OF 400MG DAILY FOR 14 MONTHS   SUBSEQUENT THERAPY OF 400MG DAILY FOR 18 MONTHS
     Route: 065

REACTIONS (2)
  - JOINT ANKYLOSIS [None]
  - TREATMENT FAILURE [None]
